FAERS Safety Report 18523775 (Version 6)
Quarter: 2023Q4

REPORT INFORMATION
  Report Type: Spontaneous
  Country: US (occurrence: US)
  Receive Date: 20201119
  Receipt Date: 20231228
  Transmission Date: 20240110
  Serious: Yes (Other)
  Sender: FDA-Public Use
  Company Number: US-PFIZER INC-2020452959

PATIENT
  Age: 75 Year
  Sex: Female

DRUGS (2)
  1. PREMARIN [Suspect]
     Active Substance: ESTROGENS, CONJUGATED
     Dosage: PLACE 0.5 G INTO THE VAGINA TWICE A WEEK ON WEDNESDAY AND FRIDAY/2X 5 WEEKLY
     Route: 067
     Dates: start: 20221228
  2. PREMARIN [Suspect]
     Active Substance: ESTROGENS, CONJUGATED
     Dosage: PLACE 5 G INTO VAGINA
     Route: 067

REACTIONS (3)
  - COVID-19 [Unknown]
  - Memory impairment [Unknown]
  - Off label use [Unknown]
